FAERS Safety Report 14278360 (Version 22)
Quarter: 2025Q4

REPORT INFORMATION
  Report Type: Spontaneous
  Country: EU (occurrence: EU)
  Receive Date: 20171212
  Receipt Date: 20251202
  Transmission Date: 20260117
  Serious: Yes (Life-Threatening, Hospitalization, Congenital Anomaly, Other)
  Sender: MYLAN
  Company Number: EU-MYLANLABS-2008S1005305

PATIENT
  Sex: Female
  Weight: 1.9 kg

DRUGS (96)
  1. ACETAMINOPHEN [Suspect]
     Active Substance: ACETAMINOPHEN
     Indication: Sciatica
     Dosage: 1 DF, QD, 8-9 GRAMS/DAY FROM THE 2ND TO THE 3R
     Route: 064
  2. ACETAMINOPHEN [Suspect]
     Active Substance: ACETAMINOPHEN
     Indication: Sciatica
     Dosage: 1 DF, QD, 8-9 GRAMS/DAY FROM THE 2ND TO THE 3R
  3. ACETAMINOPHEN [Suspect]
     Active Substance: ACETAMINOPHEN
     Dosage: 1 DF, QD, 8-9 GRAMS/DAY FROM THE 2ND TO THE 3R
  4. ACETAMINOPHEN [Suspect]
     Active Substance: ACETAMINOPHEN
     Dosage: 1 DF, QD, 8-9 GRAMS/DAY FROM THE 2ND TO THE 3R
     Route: 064
  5. ACETAMINOPHEN [Suspect]
     Active Substance: ACETAMINOPHEN
     Dosage: 1 DF, QD, 8-9 GRAMS/DAY FROM THE 2ND TO THE 3R
     Route: 064
  6. ACETAMINOPHEN [Suspect]
     Active Substance: ACETAMINOPHEN
     Dosage: 1 DF, QD, 8-9 GRAMS/DAY FROM THE 2ND TO THE 3R
  7. ACETAMINOPHEN [Suspect]
     Active Substance: ACETAMINOPHEN
     Dosage: 1 DF, QD, 8-9 GRAMS/DAY FROM THE 2ND TO THE 3R
  8. ACETAMINOPHEN [Suspect]
     Active Substance: ACETAMINOPHEN
     Dosage: 1 DF, QD, 8-9 GRAMS/DAY FROM THE 2ND TO THE 3R
     Route: 064
  9. ACETAMINOPHEN [Suspect]
     Active Substance: ACETAMINOPHEN
     Dosage: 1 DOSAGE FORM, QD
     Route: 064
  10. ACETAMINOPHEN [Suspect]
     Active Substance: ACETAMINOPHEN
     Dosage: 1 DOSAGE FORM, QD
     Route: 064
  11. ACETAMINOPHEN [Suspect]
     Active Substance: ACETAMINOPHEN
     Dosage: 1 DOSAGE FORM, QD
  12. ACETAMINOPHEN [Suspect]
     Active Substance: ACETAMINOPHEN
     Dosage: 1 DOSAGE FORM, QD
  13. ACETAMINOPHEN [Suspect]
     Active Substance: ACETAMINOPHEN
     Dosage: 1 DOSAGE FORM, QD
     Route: 064
  14. ACETAMINOPHEN [Suspect]
     Active Substance: ACETAMINOPHEN
     Dosage: 1 DOSAGE FORM, QD
     Route: 064
  15. ACETAMINOPHEN [Suspect]
     Active Substance: ACETAMINOPHEN
     Dosage: 1 DOSAGE FORM, QD
  16. ACETAMINOPHEN [Suspect]
     Active Substance: ACETAMINOPHEN
     Dosage: 1 DOSAGE FORM, QD
  17. ACETAMINOPHEN [Suspect]
     Active Substance: ACETAMINOPHEN
     Dosage: 1 DF, QD (1-2 G/DAY (4TH MONTH TO DELIVERY)
  18. ACETAMINOPHEN [Suspect]
     Active Substance: ACETAMINOPHEN
     Dosage: 1 DF, QD (1-2 G/DAY (4TH MONTH TO DELIVERY)
  19. ACETAMINOPHEN [Suspect]
     Active Substance: ACETAMINOPHEN
     Dosage: 1 DF, QD (1-2 G/DAY (4TH MONTH TO DELIVERY)
     Route: 064
  20. ACETAMINOPHEN [Suspect]
     Active Substance: ACETAMINOPHEN
     Dosage: 1 DF, QD (1-2 G/DAY (4TH MONTH TO DELIVERY)
     Route: 064
  21. ACETAMINOPHEN [Suspect]
     Active Substance: ACETAMINOPHEN
     Dosage: 1 DF, QD (1-2 G/DAY (4TH MONTH TO DELIVERY)
  22. ACETAMINOPHEN [Suspect]
     Active Substance: ACETAMINOPHEN
     Dosage: 1 DF, QD (1-2 G/DAY (4TH MONTH TO DELIVERY)
  23. ACETAMINOPHEN [Suspect]
     Active Substance: ACETAMINOPHEN
     Dosage: 1 DF, QD (1-2 G/DAY (4TH MONTH TO DELIVERY)
     Route: 064
  24. ACETAMINOPHEN [Suspect]
     Active Substance: ACETAMINOPHEN
     Dosage: 1 DF, QD (1-2 G/DAY (4TH MONTH TO DELIVERY)
     Route: 064
  25. DICLOFENAC [Suspect]
     Active Substance: DICLOFENAC
     Indication: Product used for unknown indication
     Dosage: 75 MG, QD, FROM THE 2ND TO THE 3RD MONTH
     Route: 064
  26. DICLOFENAC [Suspect]
     Active Substance: DICLOFENAC
     Dosage: 75 MG, QD, FROM THE 2ND TO THE 3RD MONTH
  27. DICLOFENAC [Suspect]
     Active Substance: DICLOFENAC
     Dosage: 75 MG, QD, FROM THE 2ND TO THE 3RD MONTH
     Route: 064
  28. DICLOFENAC [Suspect]
     Active Substance: DICLOFENAC
     Dosage: 75 MG, QD, FROM THE 2ND TO THE 3RD MONTH
  29. DICLOFENAC [Suspect]
     Active Substance: DICLOFENAC
     Dosage: 75 MG, QD, FROM THE 2ND TO THE 3RD MONTH
  30. DICLOFENAC [Suspect]
     Active Substance: DICLOFENAC
     Dosage: 75 MG, QD, FROM THE 2ND TO THE 3RD MONTH
     Route: 064
  31. DICLOFENAC [Suspect]
     Active Substance: DICLOFENAC
     Dosage: 75 MG, QD, FROM THE 2ND TO THE 3RD MONTH
     Route: 064
  32. DICLOFENAC [Suspect]
     Active Substance: DICLOFENAC
     Dosage: 75 MG, QD, FROM THE 2ND TO THE 3RD MONTH
  33. DICLOFENAC [Suspect]
     Active Substance: DICLOFENAC
     Dosage: MATERNAL DOSE: 75 MG, QD
  34. DICLOFENAC [Suspect]
     Active Substance: DICLOFENAC
     Dosage: MATERNAL DOSE: 75 MG, QD
     Route: 064
  35. DICLOFENAC [Suspect]
     Active Substance: DICLOFENAC
     Dosage: MATERNAL DOSE: 75 MG, QD
  36. DICLOFENAC [Suspect]
     Active Substance: DICLOFENAC
     Dosage: MATERNAL DOSE: 75 MG, QD
  37. DICLOFENAC [Suspect]
     Active Substance: DICLOFENAC
     Dosage: MATERNAL DOSE: 75 MG, QD
     Route: 064
  38. DICLOFENAC [Suspect]
     Active Substance: DICLOFENAC
     Dosage: MATERNAL DOSE: 75 MG, QD
     Route: 064
  39. DICLOFENAC [Suspect]
     Active Substance: DICLOFENAC
     Dosage: MATERNAL DOSE: 75 MG, QD
  40. DICLOFENAC [Suspect]
     Active Substance: DICLOFENAC
     Dosage: MATERNAL DOSE: 75 MG, QD
     Route: 064
  41. DICLOFENAC [Suspect]
     Active Substance: DICLOFENAC
     Dosage: 75 MG, QD
     Route: 064
  42. DICLOFENAC [Suspect]
     Active Substance: DICLOFENAC
     Dosage: 75 MG, QD
     Route: 064
  43. DICLOFENAC [Suspect]
     Active Substance: DICLOFENAC
     Dosage: 75 MG, QD
  44. DICLOFENAC [Suspect]
     Active Substance: DICLOFENAC
     Dosage: 75 MG, QD
  45. DICLOFENAC [Suspect]
     Active Substance: DICLOFENAC
     Dosage: 75 MG, QD
     Route: 064
  46. DICLOFENAC [Suspect]
     Active Substance: DICLOFENAC
     Dosage: 75 MG, QD
     Route: 064
  47. DICLOFENAC [Suspect]
     Active Substance: DICLOFENAC
     Dosage: 75 MG, QD
  48. DICLOFENAC [Suspect]
     Active Substance: DICLOFENAC
     Dosage: 75 MG, QD
  49. DICLOFENAC [Suspect]
     Active Substance: DICLOFENAC
     Dosage: 1 DOSAGE FORM, QD (1-2 G/DAY (4TH MONT
  50. DICLOFENAC [Suspect]
     Active Substance: DICLOFENAC
     Dosage: 1 DOSAGE FORM, QD (1-2 G/DAY (4TH MONT
  51. DICLOFENAC [Suspect]
     Active Substance: DICLOFENAC
     Dosage: 1 DOSAGE FORM, QD (1-2 G/DAY (4TH MONT
     Route: 064
  52. DICLOFENAC [Suspect]
     Active Substance: DICLOFENAC
     Dosage: 1 DOSAGE FORM, QD (1-2 G/DAY (4TH MONT
     Route: 064
  53. DICLOFENAC [Suspect]
     Active Substance: DICLOFENAC
     Dosage: 1 DOSAGE FORM, QD (1-2 G/DAY (4TH MONT
  54. DICLOFENAC [Suspect]
     Active Substance: DICLOFENAC
     Dosage: 1 DOSAGE FORM, QD (1-2 G/DAY (4TH MONT
  55. DICLOFENAC [Suspect]
     Active Substance: DICLOFENAC
     Dosage: 1 DOSAGE FORM, QD (1-2 G/DAY (4TH MONT
     Route: 064
  56. DICLOFENAC [Suspect]
     Active Substance: DICLOFENAC
     Dosage: 1 DOSAGE FORM, QD (1-2 G/DAY (4TH MONT
     Route: 064
  57. NIMESULIDE [Suspect]
     Active Substance: NIMESULIDE
     Indication: Product used for unknown indication
     Dosage: 1 DF, QD,100-200MG/DAY TO DELIVERY
     Route: 064
  58. NIMESULIDE [Suspect]
     Active Substance: NIMESULIDE
     Dosage: 1 DF, QD,100-200MG/DAY TO DELIVERY
  59. NIMESULIDE [Suspect]
     Active Substance: NIMESULIDE
     Dosage: 1 DF, QD,100-200MG/DAY TO DELIVERY
     Route: 064
  60. NIMESULIDE [Suspect]
     Active Substance: NIMESULIDE
     Dosage: 1 DF, QD,100-200MG/DAY TO DELIVERY
  61. NIMESULIDE [Suspect]
     Active Substance: NIMESULIDE
     Dosage: 1 DF, QD,100-200MG/DAY TO DELIVERY
  62. NIMESULIDE [Suspect]
     Active Substance: NIMESULIDE
     Dosage: 1 DF, QD,100-200MG/DAY TO DELIVERY
     Route: 064
  63. NIMESULIDE [Suspect]
     Active Substance: NIMESULIDE
     Dosage: 1 DF, QD,100-200MG/DAY TO DELIVERY
     Route: 064
  64. NIMESULIDE [Suspect]
     Active Substance: NIMESULIDE
     Dosage: 1 DF, QD,100-200MG/DAY TO DELIVERY
  65. NIMESULIDE [Suspect]
     Active Substance: NIMESULIDE
     Dosage: 100 MG, QD
  66. NIMESULIDE [Suspect]
     Active Substance: NIMESULIDE
     Dosage: 100 MG, QD
     Route: 064
  67. NIMESULIDE [Suspect]
     Active Substance: NIMESULIDE
     Dosage: 100 MG, QD
  68. NIMESULIDE [Suspect]
     Active Substance: NIMESULIDE
     Dosage: 100 MG, QD
  69. NIMESULIDE [Suspect]
     Active Substance: NIMESULIDE
     Dosage: 100 MG, QD
     Route: 064
  70. NIMESULIDE [Suspect]
     Active Substance: NIMESULIDE
     Dosage: 100 MG, QD
     Route: 064
  71. NIMESULIDE [Suspect]
     Active Substance: NIMESULIDE
     Dosage: 100 MG, QD
  72. NIMESULIDE [Suspect]
     Active Substance: NIMESULIDE
     Dosage: 100 MG, QD
     Route: 064
  73. NIMESULIDE [Suspect]
     Active Substance: NIMESULIDE
     Dosage: 1 DF, QD
     Route: 064
  74. NIMESULIDE [Suspect]
     Active Substance: NIMESULIDE
     Dosage: 1 DF, QD
     Route: 064
  75. NIMESULIDE [Suspect]
     Active Substance: NIMESULIDE
     Dosage: 1 DF, QD
  76. NIMESULIDE [Suspect]
     Active Substance: NIMESULIDE
     Dosage: 1 DF, QD
  77. NIMESULIDE [Suspect]
     Active Substance: NIMESULIDE
     Dosage: 1 DF, QD
     Route: 064
  78. NIMESULIDE [Suspect]
     Active Substance: NIMESULIDE
     Dosage: 1 DF, QD
     Route: 064
  79. NIMESULIDE [Suspect]
     Active Substance: NIMESULIDE
     Dosage: 1 DF, QD
  80. NIMESULIDE [Suspect]
     Active Substance: NIMESULIDE
     Dosage: 1 DF, QD
  81. NIMESULIDE [Suspect]
     Active Substance: NIMESULIDE
     Dosage: 1 DF, QD 1 DF=100-200MG/DAY FROM 3 MONTHS
  82. NIMESULIDE [Suspect]
     Active Substance: NIMESULIDE
     Dosage: 1 DF, QD 1 DF=100-200MG/DAY FROM 3 MONTHS
  83. NIMESULIDE [Suspect]
     Active Substance: NIMESULIDE
     Dosage: 1 DF, QD 1 DF=100-200MG/DAY FROM 3 MONTHS
     Route: 064
  84. NIMESULIDE [Suspect]
     Active Substance: NIMESULIDE
     Dosage: 1 DF, QD 1 DF=100-200MG/DAY FROM 3 MONTHS
     Route: 064
  85. NIMESULIDE [Suspect]
     Active Substance: NIMESULIDE
     Dosage: 1 DF, QD 1 DF=100-200MG/DAY FROM 3 MONTHS
  86. NIMESULIDE [Suspect]
     Active Substance: NIMESULIDE
     Dosage: 1 DF, QD 1 DF=100-200MG/DAY FROM 3 MONTHS
  87. NIMESULIDE [Suspect]
     Active Substance: NIMESULIDE
     Dosage: 1 DF, QD 1 DF=100-200MG/DAY FROM 3 MONTHS
     Route: 064
  88. NIMESULIDE [Suspect]
     Active Substance: NIMESULIDE
     Dosage: 1 DF, QD 1 DF=100-200MG/DAY FROM 3 MONTHS
     Route: 064
  89. NIMESULIDE [Suspect]
     Active Substance: NIMESULIDE
     Dosage: 100 MG, QD (1DF=100-200MG DAILY (FROM 3 MO
  90. NIMESULIDE [Suspect]
     Active Substance: NIMESULIDE
     Dosage: 100 MG, QD (1DF=100-200MG DAILY (FROM 3 MO
     Route: 064
  91. NIMESULIDE [Suspect]
     Active Substance: NIMESULIDE
     Dosage: 100 MG, QD (1DF=100-200MG DAILY (FROM 3 MO
  92. NIMESULIDE [Suspect]
     Active Substance: NIMESULIDE
     Dosage: 100 MG, QD (1DF=100-200MG DAILY (FROM 3 MO
  93. NIMESULIDE [Suspect]
     Active Substance: NIMESULIDE
     Dosage: 100 MG, QD (1DF=100-200MG DAILY (FROM 3 MO
     Route: 064
  94. NIMESULIDE [Suspect]
     Active Substance: NIMESULIDE
     Dosage: 100 MG, QD (1DF=100-200MG DAILY (FROM 3 MO
     Route: 064
  95. NIMESULIDE [Suspect]
     Active Substance: NIMESULIDE
     Dosage: 100 MG, QD (1DF=100-200MG DAILY (FROM 3 MO
  96. NIMESULIDE [Suspect]
     Active Substance: NIMESULIDE
     Dosage: 100 MG, QD (1DF=100-200MG DAILY (FROM 3 MO
     Route: 064

REACTIONS (19)
  - Ductus arteriosus stenosis foetal [Recovered/Resolved]
  - Ductus arteriosus premature closure [Recovered/Resolved]
  - Neonatal respiratory distress [Unknown]
  - Premature baby [Unknown]
  - Renal failure neonatal [Recovered/Resolved]
  - Bradycardia neonatal [Recovered/Resolved]
  - Cyanosis neonatal [Recovered/Resolved]
  - Blood creatinine increased [Recovered/Resolved]
  - Emphysema [Unknown]
  - Neonatal respiratory distress syndrome [Recovered/Resolved]
  - Neonatal respiratory acidosis [Recovered/Resolved]
  - Low birth weight baby [Unknown]
  - Amniotic cavity disorder [Unknown]
  - Polyuria [Unknown]
  - Foetal exposure during pregnancy [Recovered/Resolved]
  - Oligohydramnios [Unknown]
  - Overdose [Unknown]
  - Specific gravity urine abnormal [Unknown]
  - Bladder disorder [Unknown]

NARRATIVE: CASE EVENT DATE: 20040201
